FAERS Safety Report 20036080 (Version 3)
Quarter: 2021Q4

REPORT INFORMATION
  Report Type: Report from Study
  Country: US (occurrence: US)
  Receive Date: 20211105
  Receipt Date: 20211126
  Transmission Date: 20220303
  Serious: Yes (Other)
  Sender: FDA-Public Use
  Company Number: US-JNJFOC-20211101751

PATIENT
  Sex: Female
  Weight: 80.5 kg

DRUGS (5)
  1. SELEXIPAG [Suspect]
     Active Substance: SELEXIPAG
     Indication: Pulmonary arterial hypertension
     Route: 048
  2. SELEXIPAG [Suspect]
     Active Substance: SELEXIPAG
     Route: 048
  3. ELIQUIS [Concomitant]
     Active Substance: APIXABAN
  4. SILDENAFIL CITRATE [Concomitant]
     Active Substance: SILDENAFIL CITRATE
  5. AMBRISENTAN [Concomitant]
     Active Substance: AMBRISENTAN

REACTIONS (7)
  - Diabetes mellitus [Unknown]
  - Anaemia [Unknown]
  - Hypotension [Unknown]
  - Decreased appetite [Unknown]
  - Fatigue [Unknown]
  - Trismus [Unknown]
  - Dizziness [Unknown]
